FAERS Safety Report 9855193 (Version 1)
Quarter: 2014Q1

REPORT INFORMATION
  Report Type: Spontaneous
  Country: DE (occurrence: DE)
  Receive Date: 20140130
  Receipt Date: 20140130
  Transmission Date: 20141002
  Serious: Yes (Hospitalization)
  Sender: FDA-Public Use
  Company Number: DE-ASTRAZENECA-2014SE05108

PATIENT
  Age: 54 Year
  Sex: Female
  Weight: 81 kg

DRUGS (4)
  1. CANDESARTAN [Suspect]
     Indication: HYPERTENSION
     Route: 048
  2. METFORMIN HYDROCHLORIDE [Suspect]
     Indication: DIABETES MELLITUS
     Route: 048
  3. VENLAFAXINE HYDROCHLORIDE [Suspect]
     Indication: DEPRESSION
     Route: 048
  4. AVALOX [Suspect]
     Indication: BRONCHITIS
     Route: 048
     Dates: start: 20131113, end: 20131118

REACTIONS (1)
  - Drug-induced liver injury [Recovering/Resolving]
